FAERS Safety Report 10103736 (Version 1)
Quarter: 2014Q2

REPORT INFORMATION
  Report Type: Spontaneous
  Country: US (occurrence: US)
  Receive Date: 20140424
  Receipt Date: 20140424
  Transmission Date: 20141212
  Serious: Yes (Death)
  Sender: FDA-Public Use
  Company Number: US-MYLANLABS-2014S1008550

PATIENT
  Age: 5 Year
  Sex: Female

DRUGS (3)
  1. DOXYCYCLINE [Suspect]
     Indication: ROCKY MOUNTAIN SPOTTED FEVER
     Route: 065
  2. VANCOMYCIN [Suspect]
     Route: 065
  3. CEFTRIAXONE [Suspect]
     Route: 065

REACTIONS (2)
  - Drug ineffective [Fatal]
  - Rocky mountain spotted fever [Fatal]
